FAERS Safety Report 8155735-4 (Version None)
Quarter: 2012Q1

REPORT INFORMATION
  Report Type: 
  Country: None (occurrence: None)
  Receive Date: 20120215
  Receipt Date: 20120206
  Transmission Date: 20120608
  Serious: Yes (Hospitalization)
  Sender: FDA-Public Use
  Company Number: 2012MA001717

PATIENT
  Age: 27 Year
  Sex: Female

DRUGS (7)
  1. METHYLPREDNISOLONE [Concomitant]
  2. ZOLPIDEM TARTRATE [Suspect]
     Indication: ANXIETY
     Dosage: 20 MG;QD
  3. ZOLPIDEM TARTRATE [Suspect]
     Indication: MOOD SWINGS
     Dosage: 20 MG;QD
  4. LORAZEPAM [Concomitant]
  5. DIAZEPAM [Concomitant]
  6. FLUOXETINE [Concomitant]
  7. PREDNISOLONE [Concomitant]

REACTIONS (15)
  - STARING [None]
  - BODY TEMPERATURE DECREASED [None]
  - DROOLING [None]
  - TACHYCARDIA [None]
  - BLOOD PRESSURE INCREASED [None]
  - HAEMATURIA [None]
  - WAXY FLEXIBILITY [None]
  - MUSCLE RIGIDITY [None]
  - PROTRUSION TONGUE [None]
  - TREMOR [None]
  - CATATONIA [None]
  - HYPERHIDROSIS [None]
  - WITHDRAWAL SYNDROME [None]
  - LEUKOCYTOSIS [None]
  - PYURIA [None]
